FAERS Safety Report 21447016 (Version 1)
Quarter: 2022Q4

REPORT INFORMATION
  Report Type: Spontaneous
  Country: DE (occurrence: DE)
  Receive Date: 20221012
  Receipt Date: 20221012
  Transmission Date: 20230113
  Serious: Yes (Hospitalization)
  Sender: FDA-Public Use
  Company Number: DE-ADRED-07986-01

PATIENT
  Age: 52 Year
  Sex: Male
  Weight: 80 kg

DRUGS (14)
  1. DULOXETINE [Interacting]
     Active Substance: DULOXETINE
     Indication: Product used for unknown indication
     Dosage: 60 MILLIGRAM DAILY; 30 MG, 1-0-1-0, CAPSULES
  2. ASPIRIN [Interacting]
     Active Substance: ASPIRIN
     Indication: Product used for unknown indication
     Dosage: 100 MILLIGRAM DAILY; 100MG, 0-1-0-0, TABLETS
  3. HYDROCORTISONE [Suspect]
     Active Substance: HYDROCORTISONE
     Indication: Product used for unknown indication
     Dosage: 20 MILLIGRAM DAILY; 10MG, 2-1-0-0, TABLETS
  4. FOLIC ACID [Concomitant]
     Active Substance: FOLIC ACID
     Indication: Product used for unknown indication
     Dosage: 5 MILLIGRAM DAILY; 5 MG, 1-0-0-0, TABLETS
  5. Neuro-ratiopharm [Concomitant]
     Indication: Product used for unknown indication
     Dosage: 1-0-0-0, TABLETS
  6. CPS Pulver [Concomitant]
     Indication: Product used for unknown indication
     Dosage: NEED, POWDER
  7. METAMIZOL [Concomitant]
     Active Substance: METAMIZOLE SODIUM
     Indication: Product used for unknown indication
     Dosage: 2000 MILLIGRAM DAILY; 500MG, 1-1-1-1, TABLETS
  8. VALSARTAN [Concomitant]
     Active Substance: VALSARTAN
     Indication: Product used for unknown indication
     Dosage: 80 MILLIGRAM DAILY; 80MG, 1-0-0-0, TABLETS
  9. CALCITRIOL [Concomitant]
     Active Substance: CALCITRIOL
     Indication: Product used for unknown indication
     Dosage: 1.5 MICROGRAM DAILY; 0.5 UG, 0-0-3-0, CAPSULES
  10. Fosrenol 1000mg [Concomitant]
     Indication: Product used for unknown indication
     Dosage: 2000 MILLIGRAM DAILY; 1000 MG, 0-1-1-0, CHEWABLE TABLETS
  11. PANTOPRAZOLE SODIUM [Concomitant]
     Active Substance: PANTOPRAZOLE SODIUM
     Indication: Product used for unknown indication
     Dosage: 40 MILLIGRAM DAILY; 40 MG, 1-0-0-0, TABLETS
  12. METOPROLOL [Concomitant]
     Active Substance: METOPROLOL
     Indication: Product used for unknown indication
     Dosage: 95 MILLIGRAM DAILY; 95 MG, 0.5-0-0.5-0, PROLONGED-RELEASE TABLETS
  13. CHOLECALCIFEROL [Concomitant]
     Active Substance: CHOLECALCIFEROL
     Indication: Product used for unknown indication
     Dosage: 20000 IU, MONDAY 1, CAPSULES
  14. CALCIUM ACETATE [Concomitant]
     Active Substance: CALCIUM ACETATE
     Indication: Product used for unknown indication
     Dosage: 2850 MILLIGRAM DAILY; 950 MG, 1-1-1-0, TABLETS

REACTIONS (9)
  - Haemorrhagic ovarian cyst [Unknown]
  - Diverticulitis [Unknown]
  - Pyrexia [Unknown]
  - Product monitoring error [Unknown]
  - Anaemia [Unknown]
  - Labelled drug-drug interaction medication error [Unknown]
  - Product prescribing error [Unknown]
  - Abdominal pain lower [Unknown]
  - Chills [Unknown]
